FAERS Safety Report 14990675 (Version 1)
Quarter: 2018Q2

REPORT INFORMATION
  Report Type: Spontaneous
  Country: US (occurrence: US)
  Receive Date: 20180608
  Receipt Date: 20180608
  Transmission Date: 20180711
  Serious: No
  Sender: FDA-Public Use
  Company Number: US-ROCHE-2097601

PATIENT
  Sex: Female

DRUGS (15)
  1. CLOTRIMAZOLE. [Concomitant]
     Active Substance: CLOTRIMAZOLE
  2. DICLOFENAC SODIUM. [Concomitant]
     Active Substance: DICLOFENAC SODIUM
  3. ALEVE [Concomitant]
     Active Substance: NAPROXEN SODIUM
  4. ACYCLOVIR. [Concomitant]
     Active Substance: ACYCLOVIR
  5. HYDROXYZINE HCL [Concomitant]
     Active Substance: HYDROXYZINE HYDROCHLORIDE
  6. SULFACETAMIDE SODIUM. [Concomitant]
     Active Substance: SULFACETAMIDE SODIUM
  7. FISH OIL [Concomitant]
     Active Substance: FISH OIL
  8. OMEPRAZOLE. [Concomitant]
     Active Substance: OMEPRAZOLE
  9. SERTRALINE [Concomitant]
     Active Substance: SERTRALINE HYDROCHLORIDE
  10. TRAMADOL. [Concomitant]
     Active Substance: TRAMADOL
  11. ACTEMRA [Suspect]
     Active Substance: TOCILIZUMAB
     Indication: RHEUMATOID ARTHRITIS
     Dosage: ONGOING:YES
     Route: 058
     Dates: start: 20180201
  12. BISACODYL. [Concomitant]
     Active Substance: BISACODYL
  13. IBUPROFEN. [Concomitant]
     Active Substance: IBUPROFEN
  14. PREDNISONE. [Concomitant]
     Active Substance: PREDNISONE
  15. HYDROXYCHLOROQUINE SULFATE. [Concomitant]
     Active Substance: HYDROXYCHLOROQUINE SULFATE

REACTIONS (1)
  - Paraesthesia [Unknown]
